FAERS Safety Report 23465711 (Version 3)
Quarter: 2024Q1

REPORT INFORMATION
  Report Type: Spontaneous
  Country: NL (occurrence: NL)
  Receive Date: 20240201
  Receipt Date: 20240318
  Transmission Date: 20240410
  Serious: Yes (Other)
  Sender: FDA-Public Use
  Company Number: NL-UCBSA-2024004356

PATIENT
  Age: 83 Year
  Sex: Female
  Weight: 55 kg

DRUGS (5)
  1. ROMOSOZUMAB [Suspect]
     Active Substance: ROMOSOZUMAB
     Indication: Product used for unknown indication
     Dosage: UNK, INJECTION
     Route: 058
  2. OMEPRAZOLE [Suspect]
     Active Substance: OMEPRAZOLE
     Indication: Product used for unknown indication
     Dosage: UNK
     Route: 065
  3. BUPRENORPHINE [Suspect]
     Active Substance: BUPRENORPHINE
     Indication: Product used for unknown indication
     Dosage: UNK
     Route: 062
  4. ROSUVASTATIN CALCIUM [Suspect]
     Active Substance: ROSUVASTATIN CALCIUM
     Indication: Product used for unknown indication
     Dosage: UNK
     Route: 065
  5. OXAZEPAM [Suspect]
     Active Substance: OXAZEPAM
     Indication: Back pain
     Dosage: UNK
     Route: 065

REACTIONS (7)
  - Spinal fracture [Unknown]
  - Back pain [Unknown]
  - Wrist fracture [Recovered/Resolved]
  - Osteoporosis [Unknown]
  - Radius fracture [Unknown]
  - Fall [Unknown]
  - Weight decreased [Unknown]
